FAERS Safety Report 9290381 (Version 3)
Quarter: 2013Q3

REPORT INFORMATION
  Report Type: Not Available
  Country: JP (occurrence: JP)
  Receive Date: 20130515
  Receipt Date: 20130702
  Transmission Date: 20140515
  Serious: Yes (Life-Threatening, Hospitalization, Disabling)
  Sender: FDA-Public Use
  Company Number: JP-ASTELLAS-2013JP005744

PATIENT
  Age: 58 Year
  Sex: Male
  Weight: 50.9 kg

DRUGS (14)
  1. PROGRAF [Suspect]
     Indication: IMMUNOSUPPRESSANT DRUG THERAPY
     Dosage: 3 MG, BID
     Route: 048
     Dates: start: 20110608, end: 20110713
  2. PROGRAF [Suspect]
     Indication: IMMUNOSUPPRESSANT DRUG THERAPY
     Dosage: 2 MG, UID/QD
     Route: 041
     Dates: start: 20110607, end: 20110608
  3. SIMULECT [Concomitant]
     Indication: IMMUNOSUPPRESSANT DRUG THERAPY
     Dosage: 20 MG, UID/QD
     Route: 042
     Dates: start: 20110607, end: 20110611
  4. CELLCEPT                           /01275102/ [Concomitant]
     Indication: IMMUNOSUPPRESSANT DRUG THERAPY
     Dosage: 1 G, BID
     Route: 048
     Dates: start: 20110607
  5. PREDNISOLONE [Concomitant]
     Indication: IMMUNOSUPPRESSANT DRUG THERAPY
     Dosage: 15 MG, BID
     Route: 048
     Dates: start: 20110607, end: 2011
  6. PREDNISOLONE [Concomitant]
     Dosage: UNK
     Route: 048
     Dates: start: 2011, end: 20110811
  7. PREDNISOLONE [Concomitant]
     Dosage: 30 MG, UNKNOWN/D
     Route: 048
     Dates: start: 20110812, end: 2012
  8. PREDNISOLONE [Concomitant]
     Dosage: UNK
     Route: 048
     Dates: start: 201201
  9. PARIET [Concomitant]
     Indication: RENAL TRANSPLANT
     Dosage: 10 MG, UID/QD
     Route: 048
     Dates: start: 20110607
  10. ALLOID G [Concomitant]
     Indication: RENAL TRANSPLANT
     Dosage: 20 ML, QID
     Route: 048
     Dates: start: 20110607, end: 20110906
  11. SOLU MEDROL [Concomitant]
     Indication: RENAL TRANSPLANT
     Dosage: 500 MG, UID/QD
     Route: 042
     Dates: start: 20110607, end: 20110811
  12. SOLU MEDROL [Concomitant]
     Indication: GRAFT VERSUS HOST DISEASE
  13. DEPAKENE-R [Concomitant]
     Indication: CONVULSION
     Dosage: 200 MG, BID
     Route: 048
     Dates: start: 20110713, end: 20110809
  14. NEORAL [Concomitant]
     Indication: RENAL TRANSPLANT
     Dosage: 75 MG, BID
     Route: 048
     Dates: start: 20110713

REACTIONS (4)
  - Drug ineffective [Unknown]
  - Graft versus host disease [Recovering/Resolving]
  - Toxic encephalopathy [Recovered/Resolved with Sequelae]
  - Hyponatraemia [Not Recovered/Not Resolved]
